FAERS Safety Report 18398655 (Version 1)
Quarter: 2020Q4

REPORT INFORMATION
  Report Type: Spontaneous
  Country: CH (occurrence: CH)
  Receive Date: 20201019
  Receipt Date: 20201019
  Transmission Date: 20210114
  Serious: Yes (Other)
  Sender: FDA-Public Use
  Company Number: CH-FRESENIUS KABI-FK202010793

PATIENT
  Age: 62 Year
  Sex: Male

DRUGS (12)
  1. MEROPENEM. [Concomitant]
     Active Substance: MEROPENEM
     Indication: ACINETOBACTER INFECTION
  2. AMIKACIN. [Concomitant]
     Active Substance: AMIKACIN
     Indication: CORYNEBACTERIUM INFECTION
  3. DAPTOMYCIN. [Concomitant]
     Active Substance: DAPTOMYCIN
     Indication: ACINETOBACTER INFECTION
  4. AMIKACIN. [Concomitant]
     Active Substance: AMIKACIN
     Indication: ACINETOBACTER INFECTION
  5. CEFIDEROCOL. [Concomitant]
     Active Substance: CEFIDEROCOL
  6. MEROPENEM. [Concomitant]
     Active Substance: MEROPENEM
     Indication: CORYNEBACTERIUM INFECTION
  7. AMIKACIN. [Concomitant]
     Active Substance: AMIKACIN
     Indication: INFECTIOUS PLEURAL EFFUSION
  8. COLISTIMETHATE (MANUFACTURER UNKNOWN) [Suspect]
     Active Substance: COLISTIMETHATE SODIUM
     Indication: PRODUCT USED FOR UNKNOWN INDICATION
     Dosage: 4.5 MIO IU EVERY 12 HOURS
     Route: 065
  9. MEROPENEM. [Concomitant]
     Active Substance: MEROPENEM
     Indication: INFECTIOUS PLEURAL EFFUSION
  10. DAPTOMYCIN. [Concomitant]
     Active Substance: DAPTOMYCIN
     Indication: CORYNEBACTERIUM INFECTION
  11. DAPTOMYCIN. [Concomitant]
     Active Substance: DAPTOMYCIN
     Indication: INFECTIOUS PLEURAL EFFUSION
  12. FLUCONAZOLE. [Concomitant]
     Active Substance: FLUCONAZOLE

REACTIONS (1)
  - Acute kidney injury [Recovered/Resolved]
